FAERS Safety Report 7326377-5 (Version None)
Quarter: 2011Q1

REPORT INFORMATION
  Report Type: 
  Country: None (occurrence: None)
  Receive Date: 20110222
  Receipt Date: 20110208
  Transmission Date: 20110831
  Serious: Yes (Hospitalization)
  Sender: FDA-Public Use
  Company Number: ALK_01545_2011

PATIENT
  Sex: Female

DRUGS (1)
  1. VIVITROL [Suspect]
     Indication: ALCOHOLISM
     Dosage: (380 MG 1X/MONTH INTRAMUSCULAR)
     Route: 030
     Dates: start: 20101023

REACTIONS (5)
  - PRURITUS [None]
  - PAIN [None]
  - ERYTHEMA [None]
  - INJECTION SITE ABSCESS [None]
  - SWELLING [None]
